FAERS Safety Report 4539559-2 (Version None)
Quarter: 2004Q4

REPORT INFORMATION
  Report Type: 
  Country: None (occurrence: None)
  Receive Date: 20041223
  Receipt Date: 20041210
  Transmission Date: 20050328
  Serious: Yes (Hospitalization)
  Sender: FDA-Public Use
  Company Number: 6012174

PATIENT
  Age: 80 Year
  Sex: Female

DRUGS (6)
  1. CARDENSIEL (TABLETS) (BISOPROLOL) [Suspect]
     Indication: CARDIAC FAILURE
     Dosage: 1.25 MG (1.25 MG, 1.25 MG PER DAY), ORAL
     Route: 048
     Dates: start: 20041026, end: 20041109
  2. PREVISCAN (TABLETS) (FLUINDIONE) [Suspect]
     Indication: ATRIAL FIBRILLATION
     Dosage: 20 MG, ORAL
     Route: 048
     Dates: start: 20041008, end: 20041107
  3. ZESTRIL [Suspect]
     Indication: CARDIAC FAILURE
     Dosage: 5 MG (5 MG, 1 IN 1 D), ORAL
     Route: 048
     Dates: start: 20041008, end: 20041109
  4. LASIX [Suspect]
     Indication: ESSENTIAL HYPERTENSION
     Dosage: 20 MG (20 MG, 1 IN 1 D), ORAL
     Route: 048
     Dates: start: 20041008, end: 20041109
  5. INIPOMP (TABLETS) (PANTOPRAZOLE) [Suspect]
     Indication: DRUG USE FOR UNKNOWN INDICATION
     Dosage: 80 MG, ORAL
     Route: 048
     Dates: start: 20041008, end: 20041109
  6. CORDARONE [Concomitant]

REACTIONS (5)
  - GENERAL PHYSICAL HEALTH DETERIORATION [None]
  - INFLAMMATION [None]
  - INTERNATIONAL NORMALISED RATIO INCREASED [None]
  - NEUTROPENIA [None]
  - RENAL FAILURE [None]
